FAERS Safety Report 7590564 (Version 5)
Quarter: 2012Q4

REPORT INFORMATION
  Report Type: Report from Study
  Country: JP (occurrence: JP)
  Receive Date: 20100917
  Receipt Date: 20121204
  Transmission Date: 20130627
  Serious: Yes (Death, Hospitalization, Other)
  Sender: FDA-Public Use
  Company Number: JP-CELGENEUS-087-21880-10083087

PATIENT
  Age: 63 Year
  Sex: Male
  Weight: 52.5 kg

DRUGS (6)
  1. REVLIMID [Suspect]
     Indication: MULTIPLE MYELOMA
     Dosage: 25 Milligram
     Route: 048
     Dates: start: 20100820, end: 20100826
  2. REVLIMID [Suspect]
     Dosage: 10 Milligram
     Route: 048
     Dates: start: 20100908, end: 20100909
  3. LENADEX [Suspect]
     Indication: MULTIPLE MYELOMA
     Dosage: 40 Milligram
     Route: 048
     Dates: start: 20100820, end: 20100823
  4. BAYASPIRIN [Concomitant]
     Indication: ANGINA PECTORIS
     Dosage: 100 Milligram
     Route: 048
     Dates: start: 2010, end: 20100909
  5. PLAVIX [Concomitant]
     Indication: ANGINA PECTORIS
     Dosage: 75 Milligram
     Route: 048
     Dates: start: 2010, end: 20100909
  6. ZOMETA [Concomitant]
     Indication: MULTIPLE MYELOMA
     Dosage: 4 Milligram
     Route: 041
     Dates: start: 20100821, end: 20100821

REACTIONS (4)
  - Pulmonary oedema [Fatal]
  - Infection [Not Recovered/Not Resolved]
  - Thrombocytopenia [Recovering/Resolving]
  - Neutropenia [Not Recovered/Not Resolved]
